FAERS Safety Report 11457075 (Version 8)
Quarter: 2015Q4

REPORT INFORMATION
  Report Type: Spontaneous
  Country: CA (occurrence: CA)
  Receive Date: 20150904
  Receipt Date: 20151207
  Transmission Date: 20160304
  Serious: Yes (Other)
  Sender: FDA-Public Use
  Company Number: CA-AMGEN-CANSP2015090326

PATIENT
  Age: 68 Year
  Sex: Female

DRUGS (11)
  1. ATIVAN [Concomitant]
     Active Substance: LORAZEPAM
     Dosage: UNK
  2. PERCOCET                           /00446701/ [Concomitant]
     Active Substance: ACETAMINOPHEN\OXYCODONE HYDROCHLORIDE\OXYCODONE TEREPHTHALATE
     Dosage: UNK
  3. ENBREL [Suspect]
     Active Substance: ETANERCEPT
     Indication: RHEUMATOID ARTHRITIS
     Dosage: UNK
     Route: 065
  4. PLAQUENIL [Concomitant]
     Active Substance: HYDROXYCHLOROQUINE SULFATE
     Indication: RHEUMATOID ARTHRITIS
     Dosage: ONE TABLET ORALLY, QD
     Route: 048
  5. LOVASTATIN. [Concomitant]
     Active Substance: LOVASTATIN
     Dosage: UNK
  6. FLEXERIL [Concomitant]
     Active Substance: CYCLOBENZAPRINE HYDROCHLORIDE
     Dosage: UNK
  7. XELJANZ [Suspect]
     Active Substance: TOFACITINIB CITRATE
     Indication: RHEUMATOID ARTHRITIS
     Dosage: 5 MG, BID
     Route: 048
     Dates: start: 20150825
  8. HUMIRA [Suspect]
     Active Substance: ADALIMUMAB
     Indication: PRODUCT USED FOR UNKNOWN INDICATION
     Dosage: UNK
     Route: 065
  9. SIMPONI [Suspect]
     Active Substance: GOLIMUMAB
     Indication: PRODUCT USED FOR UNKNOWN INDICATION
     Dosage: UNK
     Route: 065
  10. SENOKOT [Concomitant]
     Active Substance: SENNOSIDES
     Dosage: UNK
  11. COVERSYL                           /00790702/ [Concomitant]
     Active Substance: PERINDOPRIL
     Dosage: UNK

REACTIONS (25)
  - Nodule [Recovered/Resolved]
  - Impaired healing [Unknown]
  - Dyspnoea [Unknown]
  - Shoulder deformity [Unknown]
  - Fatigue [Unknown]
  - Cataract [Unknown]
  - Hypokinesia [Unknown]
  - Dry eye [Unknown]
  - Musculoskeletal pain [Unknown]
  - Swelling [Unknown]
  - Peripheral swelling [Recovering/Resolving]
  - Gait disturbance [Unknown]
  - Pain in extremity [Recovering/Resolving]
  - Muscle atrophy [Unknown]
  - Joint swelling [Recovered/Resolved]
  - Arthralgia [Recovering/Resolving]
  - Hand deformity [Recovering/Resolving]
  - Foot deformity [Unknown]
  - Fine motor skill dysfunction [Unknown]
  - Activities of daily living impaired [Unknown]
  - Drug ineffective [Unknown]
  - Disability [Unknown]
  - Hepatitis C [Recovered/Resolved]
  - Weight decreased [Unknown]
  - Arthropathy [Unknown]
